FAERS Safety Report 6259407-2 (Version None)
Quarter: 2009Q2

REPORT INFORMATION
  Report Type: 
  Country: None (occurrence: None)
  Receive Date: 20090625
  Receipt Date: 20090611
  Transmission Date: 20091009
  Serious: Yes (Other)
  Sender: FDA-Public Use
  Company Number: THYM-1001071

PATIENT
  Age: 43 Year
  Sex: Male

DRUGS (14)
  1. THYMOGLOBULIN [Suspect]
     Indication: APLASTIC ANAEMIA
     Dosage: 210 MG, QD, INTRAVENOUS
     Route: 042
     Dates: start: 20090609, end: 20090610
  2. THYMOGLOBULIN [Suspect]
  3. CYCLOSPORINE [Concomitant]
  4. VALTREX [Concomitant]
  5. LEVAQUIN [Concomitant]
  6. ATOVAQUONE [Concomitant]
  7. DIFLUCAN [Concomitant]
  8. NEXIUM (ESOMEPRAZOLE SODIUM) [Concomitant]
  9. OXYCODONE HCL [Concomitant]
  10. ZOFRAN [Concomitant]
  11. SOLU-MEDROL [Concomitant]
  12. TYLENOL [Concomitant]
  13. BENADRYL [Concomitant]
  14. NEUPOGEN [Concomitant]

REACTIONS (2)
  - ALANINE AMINOTRANSFERASE INCREASED [None]
  - ASPARTATE AMINOTRANSFERASE INCREASED [None]
